FAERS Safety Report 16140310 (Version 1)
Quarter: 2019Q2

REPORT INFORMATION
  Report Type: Spontaneous
  Country: US (occurrence: US)
  Receive Date: 20190329
  Receipt Date: 20190329
  Transmission Date: 20190711
  Serious: Yes (Hospitalization)
  Sender: FDA-Public Use
  Company Number: None

PATIENT
  Age: 65 Year
  Sex: Male

DRUGS (6)
  1. VENLAFAXINE ER 75 MG [Concomitant]
     Active Substance: VENLAFAXINE HYDROCHLORIDE
  2. ASPIRIN. [Concomitant]
     Active Substance: ASPIRIN
  3. REPATHA [Suspect]
     Active Substance: EVOLOCUMAB
     Indication: CARDIAC DISORDER
     Dosage: ?          OTHER FREQUENCY:EVERY 14 DAYS;?
     Route: 058
  4. TAMSULOSIN 0.4 MG [Concomitant]
     Active Substance: TAMSULOSIN
  5. REPATHA [Suspect]
     Active Substance: EVOLOCUMAB
     Indication: HYPERCHOLESTEROLAEMIA
     Dosage: ?          OTHER FREQUENCY:EVERY 14 DAYS;?
     Route: 058
  6. OMEPRAZOLE/BICARBONATE 20/1680 [Concomitant]

REACTIONS (1)
  - Thrombosis [None]

NARRATIVE: CASE EVENT DATE: 20190303
